FAERS Safety Report 23052449 (Version 2)
Quarter: 2023Q4

REPORT INFORMATION
  Report Type: Report from Study
  Country: US (occurrence: US)
  Receive Date: 20231011
  Receipt Date: 20231218
  Transmission Date: 20240110
  Serious: Yes (Hospitalization)
  Sender: FDA-Public Use
  Company Number: US-ABBVIE-5391581

PATIENT
  Sex: Female

DRUGS (3)
  1. IMBRUVICA [Suspect]
     Active Substance: IBRUTINIB
     Indication: Diffuse large B-cell lymphoma
     Dosage: FORM STRENGTH WAS 140 MILLIGRAM
     Route: 048
     Dates: start: 20230810, end: 20230827
  2. IMBRUVICA [Suspect]
     Active Substance: IBRUTINIB
     Indication: Diffuse large B-cell lymphoma
     Dosage: FORM STRENGTH WAS 140 MILLIGRAM
     Route: 048
     Dates: start: 20230830, end: 20231210
  3. LEVAQUIN [Concomitant]
     Active Substance: LEVOFLOXACIN
     Indication: Antibiotic prophylaxis

REACTIONS (3)
  - Chemotherapy [Unknown]
  - Off label use [Unknown]
  - Chemotherapy [Recovered/Resolved]

NARRATIVE: CASE EVENT DATE: 20230101
